FAERS Safety Report 22875882 (Version 3)
Quarter: 2023Q4

REPORT INFORMATION
  Report Type: Spontaneous
  Country: CA (occurrence: CA)
  Receive Date: 20230829
  Receipt Date: 20231002
  Transmission Date: 20240110
  Serious: Yes (Hospitalization, Other)
  Sender: FDA-Public Use
  Company Number: CA-CELLTRION INC.-2023CA015672

PATIENT

DRUGS (3)
  1. INFLECTRA [Suspect]
     Active Substance: INFLIXIMAB-DYYB
     Indication: Colitis ulcerative
     Dosage: 5 MG/KG, WK 0 (HOSPITAL START) 2, 6 THEN EVERY 8 WEEKS
     Route: 042
     Dates: start: 20230720
  2. INFLECTRA [Suspect]
     Active Substance: INFLIXIMAB-DYYB
     Dosage: 5 MG/KG, WK 0 (HOSPITAL START) 2, 6 THEN EVERY 8 WEEKS
     Route: 042
     Dates: start: 20230803
  3. INFLECTRA [Suspect]
     Active Substance: INFLIXIMAB-DYYB
     Dosage: 5 MG/KG WK 0 (HOSPITAL START) 2, 6 THEN EVERY 8 WEEKS (485MG, AT 3 WEEKS, 6 DAYS)
     Route: 042
     Dates: start: 20230830

REACTIONS (4)
  - Pulmonary embolism [Recovered/Resolved with Sequelae]
  - Thrombophlebitis [Recovered/Resolved with Sequelae]
  - Hepatic enzyme increased [Not Recovered/Not Resolved]
  - Off label use [Unknown]

NARRATIVE: CASE EVENT DATE: 20230701
